FAERS Safety Report 5634728-2 (Version None)
Quarter: 2008Q1

REPORT INFORMATION
  Report Type: 
  Country: None (occurrence: None)
  Receive Date: 20080131
  Receipt Date: 20071120
  Transmission Date: 20080703
  Serious: Yes (Hospitalization)
  Sender: FDA-Public Use
  Company Number: PHEH2007US14825

PATIENT
  Age: 49 Year
  Sex: Male
  Weight: 92.1 kg

DRUGS (5)
  1. TEKTURNA [Suspect]
     Indication: HYPERTENSION
     Dosage: 150 MG, QD, ORAL
     Route: 048
     Dates: start: 20071011, end: 20071025
  2. DIOVAN HCT [Concomitant]
  3. PAXIL [Concomitant]
  4. ATENOLOL [Concomitant]
  5. VYTORIN [Concomitant]

REACTIONS (3)
  - CONFUSIONAL STATE [None]
  - GRAND MAL CONVULSION [None]
  - MENTAL STATUS CHANGES [None]
